FAERS Safety Report 17666438 (Version 1)
Quarter: 2020Q2

REPORT INFORMATION
  Report Type: Spontaneous
  Country: IR (occurrence: IR)
  Receive Date: 20200414
  Receipt Date: 20200414
  Transmission Date: 20200713
  Serious: Yes (Hospitalization)
  Sender: FDA-Public Use
  Company Number: IR-SILVERGATE PHARMACEUTICALS, INC.-2020SIL00015

PATIENT
  Age: 68 Year
  Sex: Female

DRUGS (6)
  1. LOSARTAN. [Concomitant]
     Active Substance: LOSARTAN
     Route: 065
  2. METHOTREXATE. [Suspect]
     Active Substance: METHOTREXATE
     Dosage: 1 TABLETS, 1X/DAY
     Route: 065
  3. TRIAMTERENE-H [Concomitant]
     Route: 065
  4. ASPIRIN. [Suspect]
     Active Substance: ASPIRIN
     Route: 065
  5. CARVEDILOL. [Concomitant]
     Active Substance: CARVEDILOL
     Route: 065
  6. L-CARNITINE [Concomitant]
     Active Substance: LEVOCARNITINE
     Route: 065

REACTIONS (4)
  - Paraesthesia [Recovered/Resolved]
  - Product dispensing error [Recovered/Resolved]
  - Potentiating drug interaction [Recovered/Resolved]
  - Toxicity to various agents [Recovered/Resolved]
